FAERS Safety Report 9192523 (Version 1)
Quarter: 2013Q1

REPORT INFORMATION
  Report Type: Spontaneous
  Country: US (occurrence: US)
  Receive Date: 20130327
  Receipt Date: 20130327
  Transmission Date: 20140127
  Serious: No
  Sender: FDA-Public Use
  Company Number: US-PFIZER INC-2013095533

PATIENT
  Sex: Male

DRUGS (3)
  1. VIAGRA [Suspect]
     Dosage: UNK
  2. VIAGRA [Suspect]
     Dosage: HALF A TABLET UNKNOWN DOSE, UNK
  3. VIAGRA [Suspect]
     Dosage: ENTIRE TABLET UNKNOWN DOSE, UNK

REACTIONS (1)
  - Drug ineffective [Unknown]
